FAERS Safety Report 18420359 (Version 12)
Quarter: 2023Q1

REPORT INFORMATION
  Report Type: Spontaneous
  Country: PT (occurrence: PT)
  Receive Date: 20201023
  Receipt Date: 20230224
  Transmission Date: 20230417
  Serious: Yes (Hospitalization, Other)
  Sender: FDA-Public Use
  Company Number: PT-ESTEVE-2020-07785

PATIENT
  Age: 68 Year
  Sex: Female

DRUGS (13)
  1. PIPERACILLIN AND TAZOBACTAM [Suspect]
     Active Substance: PIPERACILLIN SODIUM\TAZOBACTAM SODIUM
     Indication: Soft tissue infection
     Dosage: UNK
     Route: 065
  2. PIPERACILLIN AND TAZOBACTAM [Suspect]
     Active Substance: PIPERACILLIN SODIUM\TAZOBACTAM SODIUM
     Indication: Evidence based treatment
  3. PIPERACILLIN AND TAZOBACTAM [Suspect]
     Active Substance: PIPERACILLIN SODIUM\TAZOBACTAM SODIUM
     Indication: Infection
  4. PAROXETINE [Suspect]
     Active Substance: PAROXETINE
     Indication: Psychomotor hyperactivity
     Dosage: UNK
     Route: 065
  5. PAROXETINE [Suspect]
     Active Substance: PAROXETINE
     Indication: Affective disorder
  6. RISPERIDONE [Suspect]
     Active Substance: RISPERIDONE
     Indication: Psychomotor hyperactivity
     Dosage: UNK
     Route: 065
  7. RISPERIDONE [Suspect]
     Active Substance: RISPERIDONE
     Indication: Affective disorder
  8. RISPERIDONE [Suspect]
     Active Substance: RISPERIDONE
     Indication: Evidence based treatment
  9. METAMIZOLE [Suspect]
     Active Substance: METAMIZOLE
     Indication: Analgesic therapy
     Dosage: UNK
     Route: 065
  10. METAMIZOLE [Suspect]
     Active Substance: METAMIZOLE
     Indication: Pain
  11. PAROXETINE [Concomitant]
     Active Substance: PAROXETINE
     Indication: Psychomotor hyperactivity
     Dosage: UNK
     Route: 065
  12. PAROXETINE [Concomitant]
     Active Substance: PAROXETINE
     Indication: Affective disorder
  13. METAMIZOLE [Concomitant]
     Active Substance: METAMIZOLE
     Indication: Product used for unknown indication
     Dosage: UNK
     Route: 065

REACTIONS (9)
  - Acute generalised exanthematous pustulosis [Recovered/Resolved]
  - Pyrexia [Recovered/Resolved]
  - Pustule [Recovered/Resolved]
  - Dermatosis [Recovered/Resolved]
  - Pruritus [Recovered/Resolved]
  - Rash [Recovered/Resolved]
  - Drug hypersensitivity [Recovered/Resolved]
  - Off label use [Unknown]
  - Product use in unapproved indication [Unknown]
